FAERS Safety Report 8976891 (Version 1)
Quarter: 2012Q4

REPORT INFORMATION
  Report Type: 
  Country: US (occurrence: US)
  Receive Date: 20121220
  Receipt Date: 20121220
  Transmission Date: 20130627
  Serious: No
  Sender: FDA-Public Use
  Company Number: US-GLAXOSMITHKLINE-A0991472A

PATIENT
  Sex: Female

DRUGS (6)
  1. PROPAFENONE HYDROCHLORIDE [Suspect]
     Dosage: 150MG Twice per day
     Route: 048
     Dates: start: 20120824, end: 20120828
  2. KLONOPIN [Concomitant]
  3. TRAZODONE [Concomitant]
  4. OMEPRAZOLE [Concomitant]
  5. ZOLOFT [Concomitant]
  6. VITAMIN E [Concomitant]

REACTIONS (2)
  - Nausea [Unknown]
  - Bed rest [Unknown]
